FAERS Safety Report 5407008-8 (Version None)
Quarter: 2007Q3

REPORT INFORMATION
  Report Type: 
  Country: None (occurrence: None)
  Receive Date: 20070803
  Receipt Date: 20070803
  Transmission Date: 20080115
  Serious: Yes (Hospitalization)
  Sender: FDA-Public Use
  Company Number: None

PATIENT
  Age: 75 Year
  Sex: Male

DRUGS (2)
  1. FUROSEMIDE [Suspect]
     Indication: HYPERTENSION
     Dosage: 20MG EVERY DAY PO
     Route: 048
     Dates: start: 20070427
  2. FOSINOPRIL SODIUM [Suspect]
     Dosage: 20MG EVERY DAY PO
     Route: 048
     Dates: start: 20070425

REACTIONS (2)
  - HYPOTENSION [None]
  - HYPOVOLAEMIA [None]
